FAERS Safety Report 4851966-7 (Version None)
Quarter: 2005Q4

REPORT INFORMATION
  Report Type: 
  Country: None (occurrence: None)
  Receive Date: 20051209
  Receipt Date: 20051128
  Transmission Date: 20060501
  Serious: Yes (Death)
  Sender: FDA-Public Use
  Company Number: 2005S1000487

PATIENT
  Age: 80 Year
  Sex: Female
  Weight: 26.3086 kg

DRUGS (11)
  1. OXANDRIN [Suspect]
     Indication: DECREASED APPETITE
     Dosage: 10 MG; QD; UNK
     Dates: start: 20051021, end: 20051117
  2. SPIRIVA [Concomitant]
  3. AVELOX [Concomitant]
  4. BIAXIN [Concomitant]
  5. ADVAIR DISKUS 250/50 [Concomitant]
  6. ETHAMBUTOL [Concomitant]
  7. VITAMINS NOS [Concomitant]
  8. IRON [Concomitant]
  9. OXYGEN [Concomitant]
  10. OTHER NUTRIENTS [Concomitant]
  11. ANTIBIOTICS [Concomitant]

REACTIONS (2)
  - BALANCE DISORDER [None]
  - DIZZINESS [None]
